FAERS Safety Report 19025116 (Version 1)
Quarter: 2021Q1

REPORT INFORMATION
  Report Type: Spontaneous
  Country: US (occurrence: US)
  Receive Date: 20210317
  Receipt Date: 20210317
  Transmission Date: 20210420
  Serious: No
  Sender: FDA-Public Use
  Company Number: None

PATIENT
  Age: 58 Year
  Sex: Female
  Weight: 69.75 kg

DRUGS (3)
  1. ^HARRELSON^S OWN^ CBD OIL [Suspect]
     Active Substance: CANNABIDIOL\HERBALS
     Indication: ANXIETY
     Dosage: ?          QUANTITY:10 SPRAY(S);?
     Route: 060
     Dates: start: 20210312, end: 20210313
  2. ^HARRELSON^S OWN^ CBD OIL [Suspect]
     Active Substance: CANNABIDIOL\HERBALS
     Indication: PAIN
     Dosage: ?          QUANTITY:10 SPRAY(S);?
     Route: 060
     Dates: start: 20210312, end: 20210313
  3. ^HARRELSON^S OWN^ CBD OIL [Suspect]
     Active Substance: CANNABIDIOL\HERBALS
     Indication: DEPRESSION
     Dosage: ?          QUANTITY:10 SPRAY(S);?
     Route: 060
     Dates: start: 20210312, end: 20210313

REACTIONS (2)
  - Hypoaesthesia [None]
  - Lip swelling [None]

NARRATIVE: CASE EVENT DATE: 20210313
